FAERS Safety Report 11096994 (Version 1)
Quarter: 2015Q2

REPORT INFORMATION
  Report Type: Spontaneous
  Country: FR (occurrence: FR)
  Receive Date: 20150507
  Receipt Date: 20150507
  Transmission Date: 20150821
  Serious: Yes (Hospitalization)
  Sender: FDA-Public Use
  Company Number: FR-ASTRAZENECA-2015SE40982

PATIENT
  Age: 41 Year
  Sex: Female

DRUGS (2)
  1. SERESTA [Concomitant]
     Active Substance: OXAZEPAM
     Indication: BIPOLAR DISORDER
  2. XEROQUEL [Suspect]
     Active Substance: QUETIAPINE FUMARATE
     Indication: BIPOLAR DISORDER
     Route: 048
     Dates: end: 201503

REACTIONS (4)
  - Fall [Unknown]
  - Spinal fracture [Unknown]
  - Off label use [Recovered/Resolved]
  - Abnormal behaviour [Unknown]
